FAERS Safety Report 23391346 (Version 1)
Quarter: 2024Q1

REPORT INFORMATION
  Report Type: Spontaneous
  Country: US (occurrence: US)
  Receive Date: 20240111
  Receipt Date: 20240111
  Transmission Date: 20240409
  Serious: No
  Sender: FDA-Public Use
  Company Number: US-E2BLSMVVAL-SPO/USA/23/0032696

PATIENT
  Age: 72 Year
  Sex: Male

DRUGS (1)
  1. FLUOROURACIL [Suspect]
     Active Substance: FLUOROURACIL
     Indication: Pigmentation disorder
     Dosage: TWICE A DAY
     Dates: start: 20231122

REACTIONS (3)
  - Pigmentation disorder [Unknown]
  - Skin disorder [Unknown]
  - Skin lesion [Unknown]
